FAERS Safety Report 11858325 (Version 1)
Quarter: 2015Q4

REPORT INFORMATION
  Report Type: Spontaneous
  Country: PT (occurrence: PT)
  Receive Date: 20151222
  Receipt Date: 20151222
  Transmission Date: 20160305
  Serious: Yes (Other)
  Sender: FDA-Public Use
  Company Number: PT-ACTAVIS-2015-28215

PATIENT
  Age: 63 Year
  Sex: Female
  Weight: 65 kg

DRUGS (4)
  1. PREDNISOLONA                       /00016201/ [Concomitant]
     Indication: ALLERGY PROPHYLAXIS
     Dosage: 20 MG, DAILY (THE NIGHT BEFORE + 20 MG IN THE MORNING)
     Route: 048
     Dates: start: 20151209, end: 20151210
  2. CLEMASTINA [Concomitant]
     Indication: ALLERGY PROPHYLAXIS
     Dosage: 2 MG, DAILY (PRE-MEDICATION)
     Route: 042
     Dates: start: 20151210, end: 20151210
  3. DOCETAXEL ACTAVIS [Suspect]
     Active Substance: DOCETAXEL
     Indication: BREAST CANCER
     Dosage: 150 MG, DAILY. (P.V ABRIL/2017)
     Route: 042
     Dates: start: 20151210, end: 20151210
  4. HERCEPTIN [Concomitant]
     Active Substance: TRASTUZUMAB
     Indication: BREAST CANCER
     Dosage: 600 MG, DAILY
     Route: 058
     Dates: start: 20151210, end: 20151210

REACTIONS (1)
  - Erythema [Recovered/Resolved]

NARRATIVE: CASE EVENT DATE: 20151210
